FAERS Safety Report 10341208 (Version 1)
Quarter: 2014Q3

REPORT INFORMATION
  Report Type: Spontaneous
  Country: CN (occurrence: CN)
  Receive Date: 20140725
  Receipt Date: 20140725
  Transmission Date: 20150326
  Serious: Yes (Other)
  Sender: FDA-Public Use
  Company Number: CN-ROCHE-1440178

PATIENT
  Sex: Female
  Weight: 62 kg

DRUGS (1)
  1. PEGASYS [Suspect]
     Active Substance: PEGINTERFERON ALFA-2A
     Indication: VIRAL INFECTION
     Route: 058
     Dates: start: 20121005, end: 20130922

REACTIONS (1)
  - Pancytopenia [Recovering/Resolving]
